FAERS Safety Report 8765723 (Version 2)
Quarter: 2012Q4

REPORT INFORMATION
  Report Type: 
  Country: US (occurrence: US)
  Receive Date: 20120903
  Receipt Date: 20120924
  Transmission Date: 20130627
  Serious: Yes (Hospitalization, Other)
  Sender: FDA-Public Use
  Company Number: US-BAYER-2012-089573

PATIENT
  Age: 60 Year
  Sex: Female

DRUGS (5)
  1. BETASERON [Suspect]
     Indication: RELAPSING-REMITTING MULTIPLE SCLEROSIS
     Dosage: UNK, QOD
     Route: 058
     Dates: start: 20040508
  2. AMPYRA [Suspect]
     Indication: PRODUCT USED FOR UNKNOWN INDICATION
     Dosage: 10 mg, BID
     Route: 048
     Dates: start: 20120206
  3. PROZAC [Concomitant]
  4. BACLOFEN [Concomitant]
  5. GABAPENTIN [Concomitant]

REACTIONS (4)
  - Cholecystitis [None]
  - Cholelithiasis [Recovering/Resolving]
  - Hepatic function abnormal [None]
  - Urinary tract infection [Recovered/Resolved]
